FAERS Safety Report 25203147 (Version 1)
Quarter: 2025Q2

REPORT INFORMATION
  Report Type: Spontaneous
  Country: RU (occurrence: RU)
  Receive Date: 20250416
  Receipt Date: 20250416
  Transmission Date: 20250716
  Serious: Yes (Hospitalization, Other)
  Sender: AMGEN
  Company Number: RU-AMGEN-RUSSP2025071968

PATIENT
  Age: 84 Year
  Sex: Female

DRUGS (6)
  1. PROLIA [Suspect]
     Active Substance: DENOSUMAB
     Indication: Osteoporosis
     Dosage: 60 MILLIGRAM, Q6MO
     Route: 065
     Dates: start: 2017
  2. PROLIA [Suspect]
     Active Substance: DENOSUMAB
     Dosage: 60 MILLIGRAM, Q6MO
     Route: 065
     Dates: start: 202011
  3. PROLIA [Suspect]
     Active Substance: DENOSUMAB
     Dosage: 60 MILLIGRAM, Q6MO
     Route: 065
     Dates: start: 202105
  4. PROLIA [Suspect]
     Active Substance: DENOSUMAB
     Dosage: 60 MILLIGRAM, Q6MO
     Route: 065
     Dates: start: 202111
  5. CINACALCET HYDROCHLORIDE [Suspect]
     Active Substance: CINACALCET HYDROCHLORIDE
     Indication: Hypercalcaemia
     Dosage: 30 MILLIGRAM, QD
     Route: 065
     Dates: start: 202102
  6. CINACALCET HYDROCHLORIDE [Suspect]
     Active Substance: CINACALCET HYDROCHLORIDE
     Dosage: 90 MILLIGRAM, QD
     Route: 065
     Dates: start: 202102

REACTIONS (11)
  - Myocardial infarction [Unknown]
  - Vascular stent stenosis [Unknown]
  - Body height decreased [Unknown]
  - Hypertension [Unknown]
  - Back pain [Unknown]
  - Asthenia [Unknown]
  - Gastrointestinal disorder [Unknown]
  - Vitamin D deficiency [Unknown]
  - Blood parathyroid hormone increased [Unknown]
  - Hypocalciuria [Unknown]
  - Weight decreased [Unknown]

NARRATIVE: CASE EVENT DATE: 20180101
